FAERS Safety Report 5444545-4 (Version None)
Quarter: 2007Q3

REPORT INFORMATION
  Report Type: 
  Country: None (occurrence: None)
  Receive Date: 20070904
  Receipt Date: 20070904
  Transmission Date: 20080115
  Serious: No
  Sender: FDA-Public Use
  Company Number: None

PATIENT
  Age: 84 Year
  Sex: Female
  Weight: 77.1115 kg

DRUGS (1)
  1. CATAPRES [Suspect]
     Indication: HYPERTENSION
     Dosage: 2 TABLETS  EACH NIGHT
     Dates: start: 20070829, end: 20070829

REACTIONS (2)
  - DRY MOUTH [None]
  - DYSARTHRIA [None]
